FAERS Safety Report 10227031 (Version 1)
Quarter: 2014Q2

REPORT INFORMATION
  Report Type: Spontaneous
  Country: US (occurrence: None)
  Receive Date: 20140606
  Receipt Date: 20140606
  Transmission Date: 20141212
  Serious: Yes (Hospitalization)
  Sender: FDA-Public Use
  Company Number: UNT-2014-001336

PATIENT
  Age: 65 Year
  Sex: Female

DRUGS (3)
  1. TYVASO [Suspect]
     Indication: PULMONARY ARTERIAL HYPERTENSION
     Route: 055
     Dates: start: 20140127
  2. REVATIO (SILDENAFIL CITRATE) [Concomitant]
  3. COUMADIN /00014802/ (WARFARIN SODIUM) [Concomitant]

REACTIONS (1)
  - Gastroenteritis [None]
